FAERS Safety Report 5986266-5 (Version None)
Quarter: 2008Q4

REPORT INFORMATION
  Report Type: 
  Country: None (occurrence: None)
  Receive Date: 20081209
  Receipt Date: 20081204
  Transmission Date: 20090506
  Serious: Yes (Hospitalization)
  Sender: FDA-Public Use
  Company Number: CH-BRISTOL-MYERS SQUIBB COMPANY-14431043

PATIENT
  Age: 79 Year
  Sex: Female

DRUGS (6)
  1. HYDROXYUREA [Suspect]
     Indication: MYELOPROLIFERATIVE DISORDER
     Dosage: INITIATED IN JUN08 SUSPENDED IN JUL08 REINTRODUCED ON 23SEP08
     Route: 048
     Dates: start: 20080601
  2. ROCEPHIN [Suspect]
     Indication: URINARY TRACT INFECTION
     Dosage: PREVIOUSLY TAKEN IN JUL08(TOWARDS THE 20JUL08)
     Route: 041
     Dates: start: 20080920, end: 20080922
  3. ROCEPHIN [Suspect]
     Indication: PNEUMONIA
     Dosage: PREVIOUSLY TAKEN IN JUL08(TOWARDS THE 20JUL08)
     Route: 041
     Dates: start: 20080920, end: 20080922
  4. AUGMENTIN '125' [Suspect]
     Indication: URINARY TRACT INFECTION
     Dosage: PREVIOUSLY TAKEN FROM 19JUL08 TO 29JUL08
     Route: 048
     Dates: start: 20080912, end: 20080919
  5. AUGMENTIN '125' [Suspect]
     Indication: PNEUMONIA
     Dosage: PREVIOUSLY TAKEN FROM 19JUL08 TO 29JUL08
     Route: 048
     Dates: start: 20080912, end: 20080919
  6. NOROXIN [Concomitant]
     Indication: URINARY TRACT INFECTION
     Route: 048
     Dates: start: 20080909, end: 20080912

REACTIONS (3)
  - CHILLS [None]
  - PNEUMONIA [None]
  - PYREXIA [None]
